FAERS Safety Report 12115734 (Version 3)
Quarter: 2016Q2

REPORT INFORMATION
  Report Type: Spontaneous
  Country: US (occurrence: US)
  Receive Date: 20160225
  Receipt Date: 20160426
  Transmission Date: 20160815
  Serious: Yes (Hospitalization)
  Sender: FDA-Public Use
  Company Number: US-PFIZER INC-2016095902

PATIENT
  Age: 53 Year
  Sex: Male

DRUGS (5)
  1. LISINOPRIL. [Concomitant]
     Active Substance: LISINOPRIL
     Dosage: UNK
  2. SUTENT [Suspect]
     Active Substance: SUNITINIB MALATE
     Dosage: 50 MG, CYCLIC (4 WEEKS ON AND THEN 2 WEEKS OFF)
     Route: 048
  3. XANAX [Concomitant]
     Active Substance: ALPRAZOLAM
     Dosage: UNK
  4. ALLOPURINOL. [Concomitant]
     Active Substance: ALLOPURINOL
     Dosage: UNK
  5. MORPHINE SULFATE. [Concomitant]
     Active Substance: MORPHINE SULFATE
     Dosage: UNK

REACTIONS (7)
  - Constipation [Unknown]
  - Oropharyngeal pain [Unknown]
  - Nausea [Unknown]
  - Thrombocytopenia [Unknown]
  - Depression [Recovered/Resolved]
  - Nasopharyngitis [Unknown]
  - Rash [Unknown]
